FAERS Safety Report 8823719 (Version 1)
Quarter: 2012Q4

REPORT INFORMATION
  Report Type: 
  Country: MX (occurrence: MX)
  Receive Date: 20121003
  Receipt Date: 20121003
  Transmission Date: 20130627
  Serious: Yes (Other)
  Sender: FDA-Public Use
  Company Number: PHHY2012MX085819

PATIENT
  Sex: Female

DRUGS (10)
  1. METOPROLOL [Suspect]
     Indication: PRE-ECLAMPSIA
     Dosage: 100 mg, Q12H
  2. HYDRALAZINE [Suspect]
     Indication: PRE-ECLAMPSIA
     Dosage: 50 mg, Q6H
  3. METHYLDOPA [Suspect]
     Indication: PRE-ECLAMPSIA
     Dosage: 500 mg, Q8H
  4. RINGER LACTATE SOLUTION [Concomitant]
     Dosage: 1000 ml, Q8H
  5. OMEPRAZOLE [Concomitant]
     Dosage: 40 mg, daily
  6. DEXAMETHASONE [Concomitant]
     Dosage: 32 mg, (loading dose)
  7. DEXAMETHASONE [Concomitant]
     Dosage: 8 mg, Q8H
  8. PHENYTOIN SODIUM [Concomitant]
     Dosage: 15 mg/kg, (loading dose)
  9. PHENYTOIN SODIUM [Concomitant]
     Dosage: 125 mg, Q8H
  10. ANAESTHETICS [Concomitant]

REACTIONS (2)
  - Renal failure acute [Unknown]
  - Exposure during pregnancy [Unknown]
